FAERS Safety Report 7319797-6 (Version None)
Quarter: 2011Q1

REPORT INFORMATION
  Report Type: 
  Country: None (occurrence: None)
  Receive Date: 20110228
  Receipt Date: 20100928
  Transmission Date: 20110831
  Serious: Yes (Hospitalization)
  Sender: FDA-Public Use
  Company Number: A0884283A

PATIENT
  Age: 38 Year
  Sex: Female

DRUGS (8)
  1. DEMEROL [Concomitant]
  2. CARDIZEM [Concomitant]
  3. TOPAMAX [Concomitant]
  4. FIORICET [Concomitant]
  5. LAMICTAL [Suspect]
     Indication: EPILEPSY
     Dosage: 25MG TWICE PER DAY
     Route: 048
     Dates: start: 20090126, end: 20090201
  6. ALBUTEROL [Concomitant]
  7. NEXIUM [Concomitant]
  8. SKELAXIN [Concomitant]

REACTIONS (3)
  - ESCHERICHIA URINARY TRACT INFECTION [None]
  - DRUG HYPERSENSITIVITY [None]
  - STEVENS-JOHNSON SYNDROME [None]
